FAERS Safety Report 11437860 (Version 2)
Quarter: 2016Q4

REPORT INFORMATION
  Report Type: Spontaneous
  Country: US (occurrence: US)
  Receive Date: 20150831
  Receipt Date: 20161229
  Transmission Date: 20170206
  Serious: Yes (Other)
  Sender: FDA-Public Use
  Company Number: US-TEVA-589358USA

PATIENT
  Age: 64 Year
  Sex: Female

DRUGS (1)
  1. COPAXONE [Suspect]
     Active Substance: GLATIRAMER ACETATE
     Dosage: UNKNOWN FORM STRENGTH
     Route: 065

REACTIONS (5)
  - Anaphylactic shock [Recovered/Resolved]
  - Pharyngeal oedema [Recovered/Resolved]
  - Rash generalised [Recovered/Resolved]
  - Dyspnoea [Recovered/Resolved]
  - Urticaria [Recovered/Resolved]

NARRATIVE: CASE EVENT DATE: 201307
